FAERS Safety Report 7179835-0 (Version None)
Quarter: 2010Q4

REPORT INFORMATION
  Report Type: 
  Country: None (occurrence: None)
  Receive Date: 20101221
  Receipt Date: 20101214
  Transmission Date: 20110411
  Serious: Yes (Hospitalization)
  Sender: FDA-Public Use
  Company Number: JP-BRISTOL-MYERS SQUIBB COMPANY-15240799

PATIENT
  Age: 38 Year
  Sex: Female
  Weight: 71 kg

DRUGS (1)
  1. ABILIFY [Suspect]
     Indication: SCHIZOPHRENIA
     Dosage: 12MG:22NV-19DC06TD:28DY,24MG:20DEC06-16JN07TD:28DY,18MG:17JA07-24JUN10TD:1255DY,24MG:26JUN10-ONG
     Route: 048
     Dates: start: 20061108

REACTIONS (3)
  - NORMAL NEWBORN [None]
  - PREGNANCY [None]
  - PREMATURE RUPTURE OF MEMBRANES [None]
